FAERS Safety Report 6997117-4 (Version None)
Quarter: 2010Q3

REPORT INFORMATION
  Report Type: 
  Country: None (occurrence: None)
  Receive Date: 20100918
  Receipt Date: 20090904
  Transmission Date: 20110219
  Serious: No
  Sender: FDA-Public Use
  Company Number: US-WYE-H10884009

PATIENT
  Sex: Male
  Weight: 74.91 kg

DRUGS (5)
  1. PRISTIQ [Suspect]
     Indication: DEPRESSION
     Route: 048
     Dates: start: 20090903
  2. VITAMINS WITH MINERALS [Concomitant]
  3. NEBIVOLOL [Concomitant]
  4. ACETYLSALICYLIC ACID [Concomitant]
  5. CARDIZEM [Concomitant]

REACTIONS (2)
  - FEELING HOT [None]
  - INSOMNIA [None]
